FAERS Safety Report 8043183-7 (Version None)
Quarter: 2012Q1

REPORT INFORMATION
  Report Type: 
  Country: None (occurrence: None)
  Receive Date: 20120112
  Receipt Date: 20120106
  Transmission Date: 20120608
  Serious: Yes (Hospitalization)
  Sender: FDA-Public Use
  Company Number: FR-ABBOTT-12P-056-0890097-00

PATIENT
  Sex: Male

DRUGS (20)
  1. ARAVA [Suspect]
     Indication: RHEUMATOID ARTHRITIS
     Dosage: FROM 24-JUN TO SEP NOT STATED AND 20MG/D SINCE SEP-2008.
     Route: 048
     Dates: start: 20080124, end: 20081203
  2. TRAMADOL HCL [Suspect]
     Indication: PRODUCT USED FOR UNKNOWN INDICATION
     Route: 048
     Dates: start: 20081001
  3. ACTONEL [Suspect]
     Dates: end: 20110701
  4. ACTEMRA [Suspect]
     Indication: RHEUMATOID ARTHRITIS
     Dates: start: 20110127
  5. ACETAMINOPHEN [Suspect]
     Indication: PRODUCT USED FOR UNKNOWN INDICATION
     Route: 048
  6. PANTOPRAZOLE [Suspect]
     Indication: PRODUCT USED FOR UNKNOWN INDICATION
     Route: 048
     Dates: start: 20080901
  7. CALCIUM CARBONATE [Concomitant]
     Indication: PRODUCT USED FOR UNKNOWN INDICATION
     Dates: start: 20040101
  8. HUMIRA [Suspect]
     Indication: RHEUMATOID ARTHRITIS
     Dates: start: 20080529, end: 20090301
  9. BONIVA [Suspect]
     Indication: OSTEOPOROSIS PROPHYLAXIS
     Route: 048
     Dates: start: 20090901, end: 20110301
  10. PANTOPRAZOLE SODIUM [Suspect]
     Indication: PROPHYLAXIS AGAINST GASTROINTESTINAL ULCER
     Route: 048
     Dates: start: 20070901
  11. SOTALOL HCL [Suspect]
     Indication: PRODUCT USED FOR UNKNOWN INDICATION
     Route: 048
     Dates: start: 20060101
  12. DOXAZOSIN MESYLATE [Suspect]
     Indication: PROSTATIC ADENOMA
     Route: 048
     Dates: start: 20081001
  13. ACTONEL [Suspect]
     Indication: PRODUCT USED FOR UNKNOWN INDICATION
     Route: 048
     Dates: start: 20040801, end: 20070101
  14. METHOTREXATE [Suspect]
     Route: 048
     Dates: start: 20090305
  15. HUMIRA [Suspect]
     Dates: start: 20090305, end: 20110101
  16. PREDNISONE TAB [Suspect]
     Indication: RHEUMATOID ARTHRITIS
     Route: 048
     Dates: start: 20031001, end: 20070101
  17. PREDNISONE TAB [Suspect]
     Route: 048
     Dates: start: 20090305
  18. NEXIUM [Suspect]
     Indication: PROPHYLAXIS AGAINST GASTROINTESTINAL ULCER
     Route: 048
     Dates: start: 20060101, end: 20070901
  19. METHOTREXATE [Suspect]
     Indication: RHEUMATOID ARTHRITIS
     Route: 048
     Dates: start: 20061201, end: 20080124
  20. CARTREX [Suspect]
     Indication: PRODUCT USED FOR UNKNOWN INDICATION
     Route: 048
     Dates: start: 20080901

REACTIONS (4)
  - FEMUR FRACTURE [None]
  - FALL [None]
  - BONE DENSITY INCREASED [None]
  - DRUG INEFFECTIVE [None]
